FAERS Safety Report 9732260 (Version 1)
Quarter: 2013Q4

REPORT INFORMATION
  Report Type: Spontaneous
  Country: US (occurrence: US)
  Receive Date: 20131204
  Receipt Date: 20131204
  Transmission Date: 20140711
  Serious: Yes (Hospitalization)
  Sender: FDA-Public Use
  Company Number: US-PFIZER INC-2013344873

PATIENT
  Age: 43 Year
  Sex: Female
  Weight: 63.49 kg

DRUGS (1)
  1. CHANTIX [Suspect]
     Indication: SMOKING CESSATION THERAPY
     Dosage: 1 MG, 2X/DAY
     Route: 048
     Dates: start: 201309

REACTIONS (13)
  - Eye haemorrhage [Unknown]
  - Apparent death [Unknown]
  - Myocardial infarction [Unknown]
  - Pruritus [Unknown]
  - Burning sensation [Unknown]
  - Vomiting [Unknown]
  - Diarrhoea [Unknown]
  - Local swelling [Unknown]
  - Swelling face [Unknown]
  - Heart rate decreased [Unknown]
  - Tremor [Unknown]
  - Asthenia [Unknown]
  - Dehydration [Unknown]
